FAERS Safety Report 4682753-0 (Version None)
Quarter: 2005Q2

REPORT INFORMATION
  Report Type: 
  Country: None (occurrence: None)
  Receive Date: 20050606
  Receipt Date: 20050527
  Transmission Date: 20051028
  Serious: Yes (Other)
  Sender: FDA-Public Use
  Company Number: PHHO2005JP08601

PATIENT
  Age: 61 Year
  Sex: Male

DRUGS (10)
  1. DIOVAN [Suspect]
     Indication: HYPERTENSION
     Dosage: 80 MG, QD
     Route: 048
     Dates: start: 20021213
  2. DEPAKENE [Concomitant]
     Dosage: 800 MG
     Route: 048
  3. NORVASC [Concomitant]
     Dosage: 5 MG
     Route: 048
     Dates: end: 20041227
  4. BUFFERIN [Concomitant]
     Dosage: 81 MG
     Route: 048
  5. TORSEMIDE [Concomitant]
     Dosage: 4 MG
     Route: 048
     Dates: start: 20030409, end: 20040412
  6. SIGMART [Concomitant]
     Dosage: 15 MG
     Route: 048
     Dates: start: 20040412
  7. PANALDINE [Concomitant]
     Dosage: 200 MG
     Route: 048
     Dates: start: 20040412
  8. BUP-4 [Concomitant]
     Dosage: 10 MG
     Route: 048
     Dates: start: 20030313
  9. DIART [Concomitant]
     Dosage: 60 MG
     Route: 048
     Dates: start: 20040721
  10. URINORM [Concomitant]
     Dosage: 50 MG
     Route: 048
     Dates: start: 20040721

REACTIONS (6)
  - BRADYCARDIA [None]
  - CARDIAC PACEMAKER INSERTION [None]
  - CORONARY ARTERY STENOSIS [None]
  - ELECTROCARDIOGRAM ST SEGMENT DEPRESSION [None]
  - HEART RATE ABNORMAL [None]
  - STENT PLACEMENT [None]
